FAERS Safety Report 12367432 (Version 1)
Quarter: 2016Q2

REPORT INFORMATION
  Report Type: Spontaneous
  Country: US (occurrence: US)
  Receive Date: 20160513
  Receipt Date: 20160513
  Transmission Date: 20160815
  Serious: No
  Sender: FDA-Public Use
  Company Number: US-BRAINTREE LABORATORIES-150392

PATIENT
  Age: 85 Year
  Sex: Female
  Weight: 64.41 kg

DRUGS (1)
  1. NULYTELY [Suspect]
     Active Substance: POLYETHYLENE GLYCOL 3350\POTASSIUM CHLORIDE\SODIUM BICARBONATE\SODIUM CHLORIDE
     Indication: OFF LABEL USE
     Dosage: ~2L
     Route: 048
     Dates: start: 20150927, end: 20150927

REACTIONS (1)
  - Abdominal distension [None]

NARRATIVE: CASE EVENT DATE: 20150927
